FAERS Safety Report 11437132 (Version 1)
Quarter: 2015Q3

REPORT INFORMATION
  Report Type: Spontaneous
  Country: US (occurrence: US)
  Receive Date: 20150821
  Receipt Date: 20150821
  Transmission Date: 20151125
  Serious: Yes (Other)
  Sender: FDA-Public Use
  Company Number: US-ELI_LILLY_AND_COMPANY-US200703001580

PATIENT
  Age: 39 Year
  Sex: Female

DRUGS (2)
  1. CYMBALTA [Suspect]
     Active Substance: DULOXETINE HYDROCHLORIDE
     Indication: ANXIETY
     Dosage: 30 MG, UNK
     Dates: start: 20070211, end: 20070212
  2. ATIVAN [Concomitant]
     Active Substance: LORAZEPAM
     Indication: INSOMNIA

REACTIONS (19)
  - Pain in extremity [Recovered/Resolved]
  - Delirium [Recovered/Resolved]
  - Yawning [Recovered/Resolved]
  - Heart rate increased [Recovered/Resolved]
  - Eye movement disorder [Recovered/Resolved]
  - Palpitations [Recovered/Resolved]
  - Neurotransmitter level altered [Unknown]
  - Delusion [Recovered/Resolved]
  - Fatigue [Recovered/Resolved]
  - Seizure [Recovered/Resolved]
  - Tremor [Recovered/Resolved]
  - Hyperhidrosis [Recovered/Resolved]
  - Homicidal ideation [Recovered/Resolved]
  - Feeling abnormal [Recovered/Resolved]
  - Insomnia [Not Recovered/Not Resolved]
  - Muscle twitching [Recovered/Resolved]
  - Agitation [Recovered/Resolved]
  - Insomnia [Not Recovered/Not Resolved]
  - Panic attack [Unknown]

NARRATIVE: CASE EVENT DATE: 2007
